FAERS Safety Report 12897164 (Version 1)
Quarter: 2016Q4

REPORT INFORMATION
  Report Type: Spontaneous
  Country: US (occurrence: US)
  Receive Date: 20161031
  Receipt Date: 20161031
  Transmission Date: 20170207
  Serious: Yes (Life-Threatening, Hospitalization, Other)
  Sender: FDA-Public Use
  Company Number: None

PATIENT
  Age: 60 Year
  Sex: Female
  Weight: 58.97 kg

DRUGS (9)
  1. LEVOTHYROXINE. [Concomitant]
     Active Substance: LEVOTHYROXINE
  2. DIETARY SUPPLEMENT [Concomitant]
     Active Substance: DIETARY SUPPLEMENT
  3. QVAR [Concomitant]
     Active Substance: BECLOMETHASONE DIPROPIONATE
  4. IRON [Concomitant]
     Active Substance: IRON
  5. SMZ/TMP GENERIC SULFAMETHOXAZOLE [Suspect]
     Active Substance: SULFAMETHOXAZOLE\TRIMETHOPRIM
     Indication: INFECTION
     Dosage: SMZ/TMP D5800+160 GENERIC SULFAMETHOXAZOLE 1 DF TWICE A DAY PO
     Route: 048
     Dates: start: 20160827, end: 20160902
  6. MONTELUKAST [Concomitant]
     Active Substance: MONTELUKAST SODIUM
  7. OMEPRAZOLE. [Concomitant]
     Active Substance: OMEPRAZOLE
  8. EXCEDRIN [Concomitant]
     Active Substance: ACETAMINOPHEN\ASPIRIN\CAFFEINE
  9. ALLEGRA [Concomitant]
     Active Substance: FEXOFENADINE HYDROCHLORIDE

REACTIONS (4)
  - Dyspnoea [None]
  - Fatigue [None]
  - Platelet count decreased [None]
  - Mucosal haemorrhage [None]

NARRATIVE: CASE EVENT DATE: 20160830
